FAERS Safety Report 16120054 (Version 1)
Quarter: 2019Q1

REPORT INFORMATION
  Report Type: Other
  Country: US (occurrence: US)
  Receive Date: 20190326
  Receipt Date: 20190326
  Transmission Date: 20190418
  Serious: Yes (Other)
  Sender: FDA-Public Use
  Company Number: US-GUTHY-RENKER, LLC-2064675

PATIENT
  Age: 76 Year
  Sex: Female

DRUGS (1)
  1. MEANINGFUL BEAUTY ENVIRONMENTAL PROTECTING MOISTURIZER SPF 30 [Suspect]
     Active Substance: AVOBENZONE\HOMOSALATE\OCTISALATE\OXYBENZONE
     Dates: start: 20190307, end: 20190310

REACTIONS (5)
  - Paraesthesia [None]
  - Lacrimation increased [None]
  - Rhinorrhoea [None]
  - Dyspnoea [Recovered/Resolved]
  - Urticaria [None]

NARRATIVE: CASE EVENT DATE: 20190308
